FAERS Safety Report 10421270 (Version 2)
Quarter: 2014Q3

REPORT INFORMATION
  Report Type: Spontaneous
  Country: IN (occurrence: IN)
  Receive Date: 20140830
  Receipt Date: 20140909
  Transmission Date: 20150326
  Serious: Yes (Death, Hospitalization)
  Sender: FDA-Public Use
  Company Number: PHHY2014IN108376

PATIENT
  Age: 3 Year
  Sex: Male

DRUGS (3)
  1. CYCLOPHOSPHAMIDE. [Suspect]
     Active Substance: CYCLOPHOSPHAMIDE
     Indication: PROPHYLAXIS AGAINST GRAFT VERSUS HOST DISEASE
     Dosage: 50 MG/KG/DAY
  2. MYCOPHENOLATE MOFETIL. [Suspect]
     Active Substance: MYCOPHENOLATE MOFETIL
     Indication: PROPHYLAXIS AGAINST GRAFT VERSUS HOST DISEASE
  3. CICLOSPORIN [Suspect]
     Active Substance: CYCLOSPORINE
     Indication: PROPHYLAXIS AGAINST GRAFT VERSUS HOST DISEASE

REACTIONS (10)
  - Acute graft versus host disease [Recovering/Resolving]
  - Diarrhoea [Unknown]
  - Respiratory distress [Fatal]
  - Graft versus host disease [Unknown]
  - Graft versus host disease in gastrointestinal tract [Not Recovered/Not Resolved]
  - Pneumonia [Fatal]
  - Cytomegalovirus infection [Fatal]
  - Graft versus host disease in liver [Not Recovered/Not Resolved]
  - Complications of transplanted liver [Recovering/Resolving]
  - Convulsion [Unknown]
